FAERS Safety Report 17799066 (Version 2)
Quarter: 2020Q2

REPORT INFORMATION
  Report Type: Spontaneous
  Country: US (occurrence: US)
  Receive Date: 20200518
  Receipt Date: 20200526
  Transmission Date: 20200714
  Serious: Yes (Hospitalization, Other)
  Sender: FDA-Public Use
  Company Number: US-IBIGEN-2020.08777

PATIENT
  Age: 66 Year
  Sex: Male
  Weight: 175 kg

DRUGS (5)
  1. CANAGLIFLOZIN [Suspect]
     Active Substance: CANAGLIFLOZIN
     Dosage: (DAILY)
     Route: 048
  2. FUROSEMIDE. [Concomitant]
     Active Substance: FUROSEMIDE
     Dosage: DAILY
     Route: 048
  3. ENALAPRIL [Concomitant]
     Active Substance: ENALAPRIL
     Dosage: DAILY
  4. AMPICILLIN/SULBACTAM [Suspect]
     Active Substance: AMPICILLIN SODIUM\SULBACTAM SODIUM
     Indication: SEPTIC ARTHRITIS STREPTOCOCCAL
     Route: 048
     Dates: start: 2018
  5. AMPICILLIN/SULBACTAM [Suspect]
     Active Substance: AMPICILLIN SODIUM\SULBACTAM SODIUM
     Indication: SEPTIC ARTHRITIS STREPTOCOCCAL
     Route: 042
     Dates: start: 2018

REACTIONS (12)
  - Nephrotic syndrome [Recovered/Resolved]
  - Blood urea increased [Recovering/Resolving]
  - Blood glucose increased [Not Recovered/Not Resolved]
  - Glucose urine present [Unknown]
  - Oliguria [Recovered/Resolved]
  - Acute kidney injury [Recovered/Resolved]
  - Blood sodium decreased [Recovering/Resolving]
  - Diarrhoea [Unknown]
  - Urine sodium decreased [Unknown]
  - Haematuria [Recovering/Resolving]
  - Blood creatinine increased [Unknown]
  - Blood potassium increased [Recovering/Resolving]

NARRATIVE: CASE EVENT DATE: 2018
